FAERS Safety Report 9175543 (Version 1)
Quarter: 2013Q1

REPORT INFORMATION
  Report Type: Spontaneous
  Country: US (occurrence: US)
  Receive Date: 20130320
  Receipt Date: 20130320
  Transmission Date: 20140127
  Serious: No
  Sender: FDA-Public Use
  Company Number: US-009507513-1303USA008478

PATIENT
  Sex: Female
  Weight: 58.96 kg

DRUGS (2)
  1. NUVARING [Suspect]
     Dosage: 1RING FOR 3 WEEKS USE
     Dates: start: 20130201
  2. NUVARING [Suspect]
     Dosage: 1 RING FOR 3 WEEKS USE

REACTIONS (1)
  - Inappropriate schedule of drug administration [Unknown]
